FAERS Safety Report 5745667-0 (Version None)
Quarter: 2008Q2

REPORT INFORMATION
  Report Type: 
  Country: None (occurrence: None)
  Receive Date: 20080521
  Receipt Date: 20080515
  Transmission Date: 20081010
  Serious: Yes (Other)
  Sender: FDA-Public Use
  Company Number: TR-ABBOTT-08P-161-0451856-00

PATIENT
  Age: 9 Year
  Sex: Male
  Weight: 26 kg

DRUGS (1)
  1. CARBAMAZEPINE [Suspect]
     Indication: MIGRAINE

REACTIONS (1)
  - THROMBOCYTOPENIA [None]
